FAERS Safety Report 5208829-7 (Version None)
Quarter: 2006Q4

REPORT INFORMATION
  Report Type: 
  Country: None (occurrence: None)
  Receive Date: 20061101
  Receipt Date: 20060707
  Transmission Date: 20070319
  Serious: No
  Sender: FDA-Public Use
  Company Number: 2006PV017206

PATIENT
  Age: 62 Year
  Sex: Female
  Weight: 89.3586 kg

DRUGS (6)
  1. SYMLIN [Suspect]
     Indication: DIABETES MELLITUS INSULIN-DEPENDENT
     Dosage: 150 MCG; TID; SC; SEE IMAGE
     Route: 058
     Dates: start: 20060601, end: 20060703
  2. SYMLIN [Suspect]
     Indication: DIABETES MELLITUS INSULIN-DEPENDENT
     Dosage: 150 MCG; TID; SC; SEE IMAGE
     Route: 058
     Dates: start: 20060704, end: 20060706
  3. SYMLIN [Suspect]
     Indication: DIABETES MELLITUS INSULIN-DEPENDENT
     Dosage: 150 MCG; TID; SC; SEE IMAGE
     Route: 058
     Dates: start: 20060707
  4. HUMALOG [Concomitant]
  5. METFORMIN HCL [Concomitant]
  6. LANTUS [Concomitant]

REACTIONS (3)
  - MEDICATION ERROR [None]
  - NAUSEA [None]
  - WEIGHT DECREASED [None]
